FAERS Safety Report 8350762 (Version 3)
Quarter: 2013Q1

REPORT INFORMATION
  Report Type: Spontaneous
  Country: US (occurrence: US)
  Receive Date: 20120124
  Receipt Date: 20130320
  Transmission Date: 20140127
  Serious: Yes (Life-Threatening)
  Sender: FDA-Public Use
  Company Number: CHPA2012US001695

PATIENT
  Age: 23 Year
  Sex: Male

DRUGS (3)
  1. EXCEDRIN EXTRA STRENGTH [Suspect]
     Indication: HEADACHE
     Dosage: 2 DF, Q4-5 HOURS
     Route: 048
     Dates: start: 201109, end: 20111211
  2. EXCEDRIN EXTRA STRENGTH [Suspect]
     Dosage: 2 DF, Q4-5 HOURS
     Route: 048
     Dates: start: 20110904, end: 20110904
  3. AUGMENTIN                               /UNK/ [Concomitant]
     Indication: ARTHROPOD BITE
     Dosage: UNK, UNK
     Dates: start: 2011, end: 2011

REACTIONS (11)
  - Anaphylactic reaction [Recovered/Resolved]
  - Dyspnoea [Recovered/Resolved]
  - Rash [Recovered/Resolved]
  - Hypotension [Recovered/Resolved]
  - Pruritus [Recovered/Resolved]
  - Urticaria [Recovered/Resolved]
  - Abdominal pain [Recovered/Resolved]
  - Vomiting [Recovered/Resolved]
  - Oedema peripheral [Recovered/Resolved]
  - Influenza [Unknown]
  - Inappropriate schedule of drug administration [Unknown]
